FAERS Safety Report 21150342 (Version 2)
Quarter: 2022Q3

REPORT INFORMATION
  Report Type: Spontaneous
  Country: JP (occurrence: JP)
  Receive Date: 20220729
  Receipt Date: 20220923
  Transmission Date: 20221026
  Serious: Yes (Disabling)
  Sender: FDA-Public Use
  Company Number: JP-AMGEN-JPNSP2020136593

PATIENT
  Age: 71 Year
  Sex: Female

DRUGS (7)
  1. EVENITY [Suspect]
     Active Substance: ROMOSOZUMAB-AQQG
     Indication: Osteoporosis
     Dosage: 210 MILLIGRAM, QMO
     Route: 058
     Dates: start: 20191224, end: 20200323
  2. CAMOSTAT MESYLATE [Concomitant]
     Active Substance: CAMOSTAT MESYLATE
     Dosage: UNK
  3. PREDNISOLONE [Concomitant]
     Active Substance: PREDNISOLONE
     Dosage: 5 MILLIGRAM, TID
  4. REBAMIPIDE [Concomitant]
     Active Substance: REBAMIPIDE
     Dosage: 100 MILLIGRAM
  5. TENELIGLIPTIN [Concomitant]
     Active Substance: TENELIGLIPTIN
     Dosage: 20 MILLIGRAM
  6. AMLODIPINE BESYLATE [Concomitant]
     Active Substance: AMLODIPINE BESYLATE
     Dosage: 5 MILLIGRAM
  7. SPIRONOLACTONE [Concomitant]
     Active Substance: SPIRONOLACTONE
     Dosage: 25 MILLIGRAM

REACTIONS (2)
  - Osteopetrosis [Unknown]
  - Anaemia [Unknown]
